FAERS Safety Report 13084144 (Version 1)
Quarter: 2017Q1

REPORT INFORMATION
  Report Type: Spontaneous
  Country: US (occurrence: US)
  Receive Date: 20170104
  Receipt Date: 20170104
  Transmission Date: 20170428
  Serious: Yes (Hospitalization)
  Sender: FDA-Public Use
  Company Number: None

PATIENT
  Age: 56 Year
  Sex: Female
  Weight: 57.61 kg

DRUGS (4)
  1. CHEMORADIATION [Suspect]
     Active Substance: UNSPECIFIED INGREDIENT
     Dosage: ROUTE - EXTERNAL BEAM?FREQUENCY - 5 DAY/WEEK
  2. NAB-PACLITAXEL [Suspect]
     Active Substance: PACLITAXEL
     Indication: PANCREATIC CARCINOMA
     Dosage: FREQUENCY - 28 DAY CYCLE
     Route: 042
     Dates: start: 20160607, end: 20160715
  3. GEMCITABINE [Suspect]
     Active Substance: GEMCITABINE\GEMCITABINE HYDROCHLORIDE
     Indication: PANCREATIC CARCINOMA
     Dosage: FREQUENCY - 28 DAY CYCLE
     Route: 042
     Dates: start: 20160330, end: 20160511
  4. 5-FU [Suspect]
     Active Substance: FLUOROURACIL
     Dosage: ROUTE - IV PUMP?FREQUENCY - 5 DAY/WEEK

REACTIONS (2)
  - Haemoglobin decreased [None]
  - Haematocrit decreased [None]

NARRATIVE: CASE EVENT DATE: 20161221
